FAERS Safety Report 6173602-2 (Version None)
Quarter: 2009Q2

REPORT INFORMATION
  Report Type: 
  Country: None (occurrence: None)
  Receive Date: 20090430
  Receipt Date: 20090427
  Transmission Date: 20091009
  Serious: Yes (Death, Other)
  Sender: FDA-Public Use
  Company Number: DE-BAYER-200919424GPV

PATIENT
  Sex: Male
  Weight: 90 kg

DRUGS (8)
  1. FLUDARABINE PHOSPHATE [Suspect]
     Indication: CHRONIC LYMPHOCYTIC LEUKAEMIA
     Route: 042
     Dates: start: 20090320, end: 20090322
  2. RITUXIMAB [Suspect]
     Indication: CHRONIC LYMPHOCYTIC LEUKAEMIA
     Route: 042
     Dates: start: 20090317, end: 20090319
  3. CYCLOPHOSPHAMIDE [Suspect]
     Indication: CHRONIC LYMPHOCYTIC LEUKAEMIA
     Route: 042
     Dates: start: 20090320, end: 20090322
  4. ACYCLOVIR [Concomitant]
     Dates: start: 20090317, end: 20090424
  5. COTRIM [Concomitant]
     Dosage: 3X/WEEK
     Dates: start: 20090317, end: 20090424
  6. ALLOPURINOL [Concomitant]
     Dosage: 300
     Dates: start: 20090217, end: 20090424
  7. PANTOPRAZOL [Concomitant]
     Dosage: 40
     Dates: start: 20090317, end: 20090424
  8. NEUPOGEN [Concomitant]
     Dosage: 30/48
     Dates: start: 20090327, end: 20090424

REACTIONS (3)
  - ANAEMIA [None]
  - CEREBRAL HAEMORRHAGE [None]
  - THROMBOCYTOPENIA [None]
